FAERS Safety Report 5901048-8 (Version None)
Quarter: 2008Q3

REPORT INFORMATION
  Report Type: 
  Country: None (occurrence: None)
  Receive Date: 20080925
  Receipt Date: 20080911
  Transmission Date: 20090109
  Serious: Yes (Other)
  Sender: FDA-Public Use
  Company Number: SUS1-2005-00110

PATIENT
  Age: 51 Year
  Sex: Male

DRUGS (4)
  1. ADDERALL XR(AMPHETAMINE ASPARATE, AMPHETAMINE SULFATE, DEXTROAMPHETAMI [Suspect]
     Indication: ATTENTION DEFICIT/HYPERACTIVITY DISORDER
     Dosage: 45 MG, 1X/DAY:QD, ORAL
     Route: 048
     Dates: start: 20040201
  2. CORTONE (CORTISONE ACETATE) [Concomitant]
  3. WELLBUTRIN [Concomitant]
  4. ... [Concomitant]

REACTIONS (3)
  - FATIGUE [None]
  - OVERDOSE [None]
  - RENAL FAILURE [None]
